FAERS Safety Report 17798305 (Version 1)
Quarter: 2020Q2

REPORT INFORMATION
  Report Type: Report from Study
  Country: US (occurrence: US)
  Receive Date: 20200518
  Receipt Date: 20200518
  Transmission Date: 20200714
  Serious: Yes (Hospitalization)
  Sender: FDA-Public Use
  Company Number: US-MYLANLABS-2020M1048861

PATIENT
  Sex: Male

DRUGS (3)
  1. DIPHENHYDRAMINE. [Concomitant]
     Active Substance: DIPHENHYDRAMINE
     Indication: PRODUCT USED FOR UNKNOWN INDICATION
     Route: 065
  2. TRETINOIN. [Concomitant]
     Active Substance: TRETINOIN
     Indication: ACUTE MYELOID LEUKAEMIA
     Dosage: 22.5 MILLIGRAM/SQ. METER, QD
     Route: 048
  3. LITHIUM. [Suspect]
     Active Substance: LITHIUM
     Indication: ACUTE MYELOID LEUKAEMIA
     Dosage: 300 MILLIGRAM, THREE TIMES DAILY; INITIATED ON DAY -3 AND CONTINUED THROUGHOUT THE CYCLE
     Route: 048

REACTIONS (3)
  - Delirium [Recovering/Resolving]
  - Off label use [Unknown]
  - Confusional state [Recovering/Resolving]
